FAERS Safety Report 6710302-1 (Version None)
Quarter: 2010Q2

REPORT INFORMATION
  Report Type: 
  Country: None (occurrence: None)
  Receive Date: 20100430
  Receipt Date: 20100413
  Transmission Date: 20101027
  Serious: Yes (Hospitalization, Other)
  Sender: FDA-Public Use
  Company Number: APP201000227

PATIENT
  Age: 42 Year
  Sex: Female

DRUGS (11)
  1. HEPARIN SODIUM INJECTION [Suspect]
     Indication: THROMBOSIS PROPHYLAXIS
     Dosage: 5000 UNITS; 3X A DAY, SUBCUTANEOUS, 5000 UNITS; 3X A DAY, SUBCUTANEOUS
     Route: 058
     Dates: start: 20080207, end: 20080211
  2. HEPARIN SODIUM INJECTION [Suspect]
     Indication: THROMBOSIS PROPHYLAXIS
     Dosage: 5000 UNITS; 3X A DAY, SUBCUTANEOUS, 5000 UNITS; 3X A DAY, SUBCUTANEOUS
     Route: 058
     Dates: start: 20080216, end: 20080218
  3. HEPARIN SODIUM [Suspect]
     Indication: THROMBOSIS PROPHYLAXIS
     Dosage: 5000 UNITS; 3X A DAY, SUBCUTANEOUS, 5000 UNITS, 3X A DAY, SUBCUTANEOUS
     Route: 058
     Dates: start: 20080207, end: 20080211
  4. HEPARIN SODIUM [Suspect]
     Indication: THROMBOSIS PROPHYLAXIS
     Dosage: 5000 UNITS; 3X A DAY, SUBCUTANEOUS, 5000 UNITS, 3X A DAY, SUBCUTANEOUS
     Route: 058
     Dates: start: 20080216, end: 20080218
  5. HEPARIN SODIUM               NJECTION                  USP (HEPARIN SO [Suspect]
  6. HEPARIN SODIUM INJECTION [Suspect]
  7. DEXEDRINE [Concomitant]
  8. CLONAZEPAM [Concomitant]
  9. SONATA [Concomitant]
  10. BUFFERIN [Concomitant]
  11. LIBRIUM [Concomitant]

REACTIONS (14)
  - ABDOMINAL PAIN [None]
  - BLOOD PRESSURE DECREASED [None]
  - CELLULITIS [None]
  - CHEST PAIN [None]
  - DIARRHOEA [None]
  - DIZZINESS [None]
  - DYSPNOEA [None]
  - HEADACHE [None]
  - NAUSEA [None]
  - PHARYNGEAL OEDEMA [None]
  - REFUSAL OF TREATMENT BY PATIENT [None]
  - SWELLING [None]
  - VOMITING [None]
  - WEIGHT ABNORMAL [None]
